FAERS Safety Report 16083956 (Version 1)
Quarter: 2019Q2

REPORT INFORMATION
  Report Type: Spontaneous
  Country: US (occurrence: US)
  Receive Date: 20190316
  Receipt Date: 20190316
  Transmission Date: 20190711
  Serious: No
  Sender: FDA-Public Use
  Company Number: None

PATIENT
  Age: 53 Year
  Sex: Female
  Weight: 50.4 kg

DRUGS (1)
  1. PREDNISONE. [Suspect]
     Active Substance: PREDNISONE
     Indication: BACK PAIN
     Route: 048
     Dates: start: 20190125, end: 20190126

REACTIONS (5)
  - Pruritus [None]
  - Skin exfoliation [None]
  - Skin burning sensation [None]
  - Rash generalised [None]
  - Erythema [None]

NARRATIVE: CASE EVENT DATE: 20190128
